FAERS Safety Report 10427078 (Version 2)
Quarter: 2014Q3

REPORT INFORMATION
  Report Type: Spontaneous
  Country: US (occurrence: US)
  Receive Date: 20140903
  Receipt Date: 20140903
  Transmission Date: 20150326
  Serious: No
  Sender: FDA-Public Use
  Company Number: US-BANPHARM-20131946

PATIENT
  Age: 60 Year
  Sex: Female
  Weight: 58.97 kg

DRUGS (2)
  1. VITAMIN C [Concomitant]
     Active Substance: ASCORBIC ACID
     Dosage: 2 DF, QD,
  2. ZYRTEC [Suspect]
     Active Substance: CETIRIZINE HYDROCHLORIDE
     Dosage: ONCE A DAY,
     Route: 048
     Dates: start: 20131130, end: 20131206

REACTIONS (2)
  - Back pain [Not Recovered/Not Resolved]
  - Dizziness [Unknown]

NARRATIVE: CASE EVENT DATE: 20131130
